FAERS Safety Report 23763165 (Version 1)
Quarter: 2024Q2

REPORT INFORMATION
  Report Type: Spontaneous
  Country: NL (occurrence: NL)
  Receive Date: 20240419
  Receipt Date: 20240419
  Transmission Date: 20240716
  Serious: Yes (Hospitalization)
  Sender: FDA-Public Use
  Company Number: None

PATIENT
  Age: 74 Year
  Sex: Male
  Weight: 42.7 kg

DRUGS (10)
  1. LINEZOLID [Suspect]
     Active Substance: LINEZOLID
     Indication: Enterococcal infection
     Dosage: FREQ:12 H; 1 PIECE 2 X PER DAY
     Dates: start: 20240312, end: 20240326
  2. DUTASTERIDE [Concomitant]
     Active Substance: DUTASTERIDE
     Dosage: CAPSULE, 0,5 MG (MILLIGRAM)
  3. TAMSULOSIN [Concomitant]
     Active Substance: TAMSULOSIN
     Dosage: MODIFIED-RELEASE CAPSULE, 0.4 MG (MILLIGRAM)
  4. ALLOPURINOL [Concomitant]
     Active Substance: ALLOPURINOL
     Dosage: TABLET, 300 MG (MILLIGRAM)
  5. PERINDOPRIL ERBUMINE [Concomitant]
     Active Substance: PERINDOPRIL ERBUMINE
     Dosage: TABLET, 4 MG (MILLIGRAM)
  6. CHOLECALCIFEROL [Concomitant]
     Active Substance: CHOLECALCIFEROL
     Dosage: ORAL SOLUTION, 100000 IU/ML (UNITS PER MILLILITER)
  7. METHADONE [Concomitant]
     Active Substance: METHADONE HYDROCHLORIDE
     Dosage: ORAL SOLUTION, 5 MG/ML (MILLIGRAMS PER MILLILITER)
  8. VALPROIC ACID [Concomitant]
     Active Substance: VALPROIC ACID
     Dosage: SUSTAINED RELEASE SACHET (GRANULATE), 750 MG (MILLIGRAM)
  9. ACETAMINOPHEN [Concomitant]
     Active Substance: ACETAMINOPHEN
     Dosage: TABLET, 500 MG (MILLIGRAM)
  10. HALOPERIDOL [Concomitant]
     Active Substance: HALOPERIDOL
     Dosage: 1 MG TABLET

REACTIONS (1)
  - Delirium [Not Recovered/Not Resolved]
